FAERS Safety Report 19398698 (Version 1)
Quarter: 2021Q2

REPORT INFORMATION
  Report Type: Spontaneous
  Country: US (occurrence: US)
  Receive Date: 20210609
  Receipt Date: 20210609
  Transmission Date: 20210717
  Serious: No
  Sender: FDA-Public Use
  Company Number: None

PATIENT
  Age: 71 Year
  Sex: Male
  Weight: 77.11 kg

DRUGS (9)
  1. ELIQUIS [Concomitant]
     Active Substance: APIXABAN
  2. LISINOPRIL. [Concomitant]
     Active Substance: LISINOPRIL
  3. REPATHA [Suspect]
     Active Substance: EVOLOCUMAB
     Indication: BLOOD CHOLESTEROL INCREASED
     Dosage: ?          OTHER ROUTE:INJECTION?
     Dates: start: 20191114
  4. GABAPENTIN. [Concomitant]
     Active Substance: GABAPENTIN
  5. VITAMIN D3 [Concomitant]
     Active Substance: CHOLECALCIFEROL
  6. SOTALOL HCL [Concomitant]
     Active Substance: SOTALOL
  7. LASIX [Concomitant]
     Active Substance: FUROSEMIDE
  8. TRAMADOL. [Concomitant]
     Active Substance: TRAMADOL
  9. ZETIA [Concomitant]
     Active Substance: EZETIMIBE

REACTIONS (8)
  - Dysuria [None]
  - Blood urine present [None]
  - Urine abnormality [None]
  - Blood albumin decreased [None]
  - Glomerulonephritis membranous [None]
  - Blood cholesterol increased [None]
  - Nephrotic syndrome [None]
  - Protein total decreased [None]

NARRATIVE: CASE EVENT DATE: 20191114
